FAERS Safety Report 6567994-X (Version None)
Quarter: 2010Q1

REPORT INFORMATION
  Report Type: 
  Country: None (occurrence: None)
  Receive Date: 20100203
  Receipt Date: 20100120
  Transmission Date: 20100710
  Serious: Yes (Other)
  Sender: FDA-Public Use
  Company Number: PHEH2008US06111

PATIENT
  Sex: Female

DRUGS (33)
  1. ESTRADERM [Suspect]
     Indication: HORMONE REPLACEMENT THERAPY
     Dosage: 0.5  / 2 X WEEKLY
     Route: 062
     Dates: start: 19910101, end: 19960806
  2. PREMARIN [Suspect]
     Indication: HORMONE REPLACEMENT THERAPY
     Dosage: 0.625 MG, UNK
     Dates: start: 19890101, end: 19960806
  3. PROVERA [Suspect]
     Indication: HORMONE REPLACEMENT THERAPY
     Dosage: 10 MG, QD
     Dates: start: 19890101, end: 19960806
  4. MPA [Suspect]
     Indication: HORMONE REPLACEMENT THERAPY
     Dosage: UNK
     Dates: end: 19960806
  5. DHEA [Concomitant]
     Route: 061
  6. NOLVADEX [Concomitant]
     Dosage: UNK
  7. DAYPRO [Concomitant]
     Dosage: UNK
  8. MEVACOR [Concomitant]
     Dosage: UNK
  9. ASPIRIN [Concomitant]
     Dosage: UNK
  10. KLONOPIN [Concomitant]
     Dosage: .5 X 1/2 / BID
  11. MULTI-VITAMINS [Concomitant]
     Dosage: UNK
  12. ALTACE [Concomitant]
     Dosage: UNK
  13. PLAVIX [Concomitant]
     Dosage: UNK
  14. ZANTAC [Concomitant]
     Dosage: UNK
  15. CELEXA [Concomitant]
     Dosage: UNK
  16. TOPRAL [Concomitant]
     Dosage: UNK
  17. ZOCOR [Concomitant]
     Dosage: UNK
  18. ATIVAN [Concomitant]
     Dosage: 0.5 MG
  19. ECOTRIN [Concomitant]
     Dosage: UNK
  20. XANAX [Concomitant]
     Dosage: UNK
  21. PEPCID [Concomitant]
     Dosage: UNK
  22. TAMBOCOR [Concomitant]
  23. GLUCOSAMINE SULFATE [Concomitant]
     Dosage: 500 MG / BID
     Route: 048
  24. REGLAN [Concomitant]
     Dosage: 10 MG / TID
     Route: 048
     Dates: start: 20001109
  25. ZOLOFT [Concomitant]
     Dosage: UNK
  26. LIPITOR [Concomitant]
     Dosage: UNK
  27. PREVACID [Concomitant]
     Dosage: UNK
  28. ASPIRIN [Concomitant]
     Dosage: UNK
  29. ATENENTOL [Concomitant]
     Dosage: UNK
  30. PREGNENOLONE [Concomitant]
     Dosage: UNK
  31. LIPIDIL [Concomitant]
     Indication: HYPERCHOLESTEROLAEMIA
     Dosage: UNK
  32. ECHINACEA [Concomitant]
     Dosage: UNK
  33. NITROGLYCERIN [Concomitant]
     Dosage: UNK

REACTIONS (48)
  - ABDOMINAL PAIN [None]
  - ANXIETY DISORDER [None]
  - ARRHYTHMIA [None]
  - ARTERIAL OCCLUSIVE DISEASE [None]
  - ARTERIAL STENT INSERTION [None]
  - ARTERIOSCLEROSIS [None]
  - ARTHRALGIA [None]
  - BREAST CANCER [None]
  - BUNDLE BRANCH BLOCK LEFT [None]
  - CEREBRAL ISCHAEMIA [None]
  - CERVICAL CONISATION [None]
  - CERVICAL DYSPLASIA [None]
  - CERVIX INFLAMMATION [None]
  - CHEST PAIN [None]
  - CLUSTER HEADACHE [None]
  - CORONARY ANGIOPLASTY [None]
  - DECREASED IMMUNE RESPONSIVENESS [None]
  - DEPRESSION [None]
  - DIARRHOEA [None]
  - DIHYDROTESTOSTERONE DECREASED [None]
  - DRY SKIN [None]
  - DYSLIPIDAEMIA [None]
  - EROSIVE OESOPHAGITIS [None]
  - FAECES DISCOLOURED [None]
  - FIBROMYALGIA [None]
  - FLUID RETENTION [None]
  - GASTRITIS [None]
  - GENERAL PHYSICAL HEALTH DETERIORATION [None]
  - HAEMATOCHEZIA [None]
  - HAIR TEXTURE ABNORMAL [None]
  - HIATUS HERNIA [None]
  - HOT FLUSH [None]
  - HYPERCHOLESTEROLAEMIA [None]
  - IRRITABLE BOWEL SYNDROME [None]
  - LDL/HDL RATIO [None]
  - MALIGNANT BREAST LUMP REMOVAL [None]
  - MENTAL DISORDER [None]
  - MUSCULOSKELETAL DISCOMFORT [None]
  - OEDEMA PERIPHERAL [None]
  - OESOPHAGEAL SPASM [None]
  - PANIC DISORDER [None]
  - PLASTIC SURGERY [None]
  - POST PROCEDURAL COMPLICATION [None]
  - RADIOTHERAPY [None]
  - SJOGREN'S SYNDROME [None]
  - SKIN DISORDER [None]
  - SPINAL OSTEOARTHRITIS [None]
  - WEIGHT INCREASED [None]
